FAERS Safety Report 18951845 (Version 3)
Quarter: 2022Q4

REPORT INFORMATION
  Report Type: Spontaneous
  Country: DE (occurrence: DE)
  Receive Date: 20210301
  Receipt Date: 20221018
  Transmission Date: 20230112
  Serious: Yes (Life-Threatening, Hospitalization, Other)
  Sender: FDA-Public Use
  Company Number: DE-ADRED-06197-01

PATIENT
  Age: 66 Year
  Sex: Male

DRUGS (13)
  1. FENTANYL [Suspect]
     Active Substance: FENTANYL
     Indication: Product used for unknown indication
     Route: 065
  2. FUROSEMIDE [Suspect]
     Active Substance: FUROSEMIDE
     Indication: Product used for unknown indication
     Dosage: 40 MG, 1-1-0-0
     Route: 065
  3. MORPHINE [Suspect]
     Active Substance: MORPHINE
     Indication: Product used for unknown indication
     Dosage: 10 MG, 2-0-2-0
     Route: 065
  4. ESOMEPRAZOLE [Concomitant]
     Active Substance: ESOMEPRAZOLE
     Dosage: 40 MG, 1-0-0-0
  5. INSULIN DETEMIR [Concomitant]
     Active Substance: INSULIN DETEMIR
     Dosage: 1 IE, 16-0-12-0
  6. POLYETHYLENE GLYCOLS [Concomitant]
     Active Substance: POLYETHYLENE GLYCOLS
     Dosage: 0-0-1-0
  7. DIGITOXIN [Concomitant]
     Active Substance: DIGITOXIN
     Dosage: 0.25 MG, 1-0-0-0
  8. RIVAROXABAN [Concomitant]
     Active Substance: RIVAROXABAN
     Dosage: 20 MG, 1-0-0-0
  9. MELPERONE [Concomitant]
     Active Substance: MELPERONE
     Dosage: 100 MG, 0-0-1-0
  10. RANITIDINE [Concomitant]
     Active Substance: RANITIDINE
     Dosage: 150 MG, 1-0-1-0
  11. ATORVASTATIN [Concomitant]
     Active Substance: ATORVASTATIN
     Dosage: 80 MG, 0-0-1-0
  12. TORSEMIDE [Concomitant]
     Active Substance: TORSEMIDE
     Dosage: 1.25 MG, 1-0-1-0
  13. BISOPROLOL [Concomitant]
     Active Substance: BISOPROLOL
     Dosage: 2.5 MG, 1-0-1-0

REACTIONS (6)
  - Constipation [Unknown]
  - General physical health deterioration [Unknown]
  - Dehydration [Unknown]
  - Disorientation [Unknown]
  - Confusional state [Unknown]
  - Ileus [Unknown]
